FAERS Safety Report 9810327 (Version 2)
Quarter: 2015Q4

REPORT INFORMATION
  Report Type: Spontaneous
  Country: US (occurrence: US)
  Receive Date: 20140110
  Receipt Date: 20151228
  Transmission Date: 20160305
  Serious: Yes (Other)
  Sender: FDA-Public Use
  Company Number: US-SANOFI-AVENTIS-2013SA078203

PATIENT
  Age: 68 Year

DRUGS (3)
  1. WARFARIN [Concomitant]
     Active Substance: WARFARIN
     Dates: start: 2010
  2. PLAVIX [Suspect]
     Active Substance: CLOPIDOGREL BISULFATE
     Indication: CEREBROVASCULAR ACCIDENT
     Route: 048
     Dates: start: 1995, end: 2012
  3. ASPIRIN. [Concomitant]
     Active Substance: ASPIRIN
     Dates: start: 1995, end: 2012

REACTIONS (5)
  - Gastrointestinal haemorrhage [Unknown]
  - Cerebral haemorrhage [Unknown]
  - Diplopia [Unknown]
  - Balance disorder [Unknown]
  - Activities of daily living impaired [Unknown]

NARRATIVE: CASE EVENT DATE: 1997
